FAERS Safety Report 24573323 (Version 2)
Quarter: 2025Q1

REPORT INFORMATION
  Report Type: Spontaneous
  Country: SE (occurrence: SE)
  Receive Date: 20241101
  Receipt Date: 20250210
  Transmission Date: 20250409
  Serious: Yes (Other)
  Sender: TEVA
  Company Number: None

PATIENT
  Age: 58 Year
  Sex: Female

DRUGS (2)
  1. GABAPENTIN [Suspect]
     Active Substance: GABAPENTIN
     Indication: Intervertebral disc protrusion
     Route: 065
     Dates: start: 202409
  2. GABAPENTIN [Suspect]
     Active Substance: GABAPENTIN
     Indication: Intervertebral disc protrusion
     Route: 065
     Dates: start: 2024, end: 2024

REACTIONS (8)
  - Syncope [Unknown]
  - Amnesia [Unknown]
  - Fall [Unknown]
  - Discomfort [Unknown]
  - Dizziness [Unknown]
  - Mobility decreased [Unknown]
  - Limb injury [Unknown]
  - Arthralgia [Unknown]

NARRATIVE: CASE EVENT DATE: 20240901
